FAERS Safety Report 13399851 (Version 1)
Quarter: 2017Q2

REPORT INFORMATION
  Report Type: Spontaneous
  Country: US (occurrence: US)
  Receive Date: 20170404
  Receipt Date: 20170404
  Transmission Date: 20170830
  Serious: No
  Sender: FDA-Public Use
  Company Number: None

PATIENT

DRUGS (2)
  1. AKOVAZ [Suspect]
     Active Substance: EPHEDRINE SULFATE
  2. ADRENALIN [Suspect]
     Active Substance: EPINEPHRINE

REACTIONS (3)
  - Circumstance or information capable of leading to medication error [None]
  - Product selection error [None]
  - Product packaging confusion [None]
